FAERS Safety Report 6786240-5 (Version None)
Quarter: 2010Q2

REPORT INFORMATION
  Report Type: 
  Country: None (occurrence: None)
  Receive Date: 20100623
  Receipt Date: 20100617
  Transmission Date: 20101027
  Serious: Yes (Disabling)
  Sender: FDA-Public Use
  Company Number: GB-RB-011729-10

PATIENT
  Age: 65 Year
  Sex: Male

DRUGS (9)
  1. BUPRENORPHINE [Suspect]
     Indication: BACK PAIN
     Dosage: 25 MCG; QH
     Route: 065
     Dates: start: 20090501
  2. ROTIGOTINE [Suspect]
     Indication: PARKINSON'S DISEASE
     Dosage: 4 MG; FREQUENCY UNKNOWN
     Route: 003
     Dates: start: 20090801
  3. LANSOPRAZOLE [Suspect]
     Dosage: UNKNOWN DOSING DETAILS
     Route: 065
  4. SELEGILINE [Suspect]
     Indication: PARKINSON'S DISEASE
     Route: 048
     Dates: start: 20100120, end: 20100123
  5. SINEMET CR [Suspect]
     Indication: PARKINSON'S DISEASE
     Dosage: 1 DF; FREQUENCY UNKNOWN
     Route: 048
     Dates: start: 20090801
  6. AMITRIPTYLINE [Suspect]
     Indication: SLEEP DISORDER
     Dosage: 25 MG; FREQUENCY UNKNOWN
     Route: 065
  7. AMITRIPTYLINE [Suspect]
     Indication: DEPRESSION
     Dosage: 25 MG; FREQUENCY UNKNOWN
     Route: 065
  8. AMITRIPTYLINE [Suspect]
     Indication: PAIN
     Dosage: 25 MG; FREQUENCY UNKNOWN
     Route: 065
  9. ATORVASTATIN [Suspect]
     Indication: DRUG USE FOR UNKNOWN INDICATION
     Dosage: UNKNOWN DOSING DETAILS
     Route: 065

REACTIONS (4)
  - DIPLOPIA [None]
  - DRUG INTERACTION [None]
  - DYSARTHRIA [None]
  - NAUSEA [None]
